FAERS Safety Report 9269254 (Version 2)
Quarter: 2013Q2

REPORT INFORMATION
  Report Type: Spontaneous
  Country: US (occurrence: US)
  Receive Date: 20130503
  Receipt Date: 20130524
  Transmission Date: 20140414
  Serious: No
  Sender: FDA-Public Use
  Company Number: US-PFIZER INC-2013131755

PATIENT
  Age: 59 Year
  Sex: Female

DRUGS (6)
  1. CELEBREX [Suspect]
     Dosage: 200 MG, 2X/DAY
     Route: 048
     Dates: start: 201210
  2. FLUOXETINE [Concomitant]
     Dosage: 30 MG DAILY
  3. MINOCYCLINE [Concomitant]
     Dosage: 50 MG DAILY
  4. RANITIDINE [Concomitant]
     Dosage: 300 MG, 2X/DAY
  5. SIMVASTATIN [Concomitant]
     Dosage: 40 MG DAILY
  6. LEVOTHYROXINE [Concomitant]
     Dosage: 50 MG DAILY

REACTIONS (1)
  - Tinnitus [Recovered/Resolved]
